FAERS Safety Report 12498868 (Version 1)
Quarter: 2016Q2

REPORT INFORMATION
  Report Type: Spontaneous
  Country: FR (occurrence: FR)
  Receive Date: 20160627
  Receipt Date: 20160627
  Transmission Date: 20160815
  Serious: Yes (Hospitalization, Other)
  Sender: FDA-Public Use
  Company Number: FR-009507513-1603FRA001435

PATIENT
  Age: 39 Year
  Sex: Female
  Weight: 117 kg

DRUGS (1)
  1. NEXPLANON [Suspect]
     Active Substance: ETONOGESTREL
     Indication: CONTRACEPTION
     Dosage: IN THE RIGHT ARM EVERY 2 YEARS
     Route: 059
     Dates: start: 20160219

REACTIONS (4)
  - Abscess limb [Recovered/Resolved]
  - Pruritus [Unknown]
  - Cellulitis [Recovered/Resolved]
  - Fat necrosis [Recovered/Resolved]

NARRATIVE: CASE EVENT DATE: 201602
